FAERS Safety Report 7904007-9 (Version None)
Quarter: 2011Q4

REPORT INFORMATION
  Report Type: 
  Country: None (occurrence: None)
  Receive Date: 20111109
  Receipt Date: 20111031
  Transmission Date: 20120403
  Serious: Yes (Other)
  Sender: FDA-Public Use
  Company Number: DK-ASTRAZENECA-2011SE66360

PATIENT
  Age: 739 Month
  Sex: Female

DRUGS (6)
  1. CLINDAMYCIN [Suspect]
     Indication: ANTIBIOTIC THERAPY
     Route: 065
     Dates: start: 20080501
  2. KEFLEX [Suspect]
     Indication: ANTIBIOTIC THERAPY
     Route: 065
     Dates: start: 20080501
  3. ZINACEF [Suspect]
     Indication: ANTIBIOTIC THERAPY
     Dosage: SINGLE DOSE
     Route: 042
     Dates: start: 20080111
  4. DICLOXACILLIN [Suspect]
     Indication: ANTIBIOTIC THERAPY
     Route: 065
     Dates: start: 20080101
  5. MEROPENEM [Suspect]
     Indication: ANTIBIOTIC THERAPY
     Route: 042
     Dates: start: 20080501
  6. GENTAMICIN [Suspect]
     Indication: ANTIBIOTIC THERAPY
     Route: 065
     Dates: start: 20080501

REACTIONS (1)
  - LEUKOCYTOCLASTIC VASCULITIS [None]
